FAERS Safety Report 6512665-9 (Version None)
Quarter: 2009Q4

REPORT INFORMATION
  Report Type: 
  Country: None (occurrence: None)
  Receive Date: 20091217
  Receipt Date: 20091202
  Transmission Date: 20100525
  Serious: Yes (Other)
  Sender: FDA-Public Use
  Company Number: 0912-SPO-VANT-0173

PATIENT
  Age: 10 Year
  Sex: Male

DRUGS (2)
  1. VANTAS [Suspect]
     Indication: PRECOCIOUS PUBERTY
     Dosage: 1 IN 1 Y, SUB Q. IMPLANT
     Route: 058
     Dates: start: 20091116
  2. LUPRON [Concomitant]

REACTIONS (4)
  - CONTRAINDICATION TO MEDICAL TREATMENT [None]
  - DRUG DISPENSING ERROR [None]
  - MEDICATION ERROR [None]
  - WRONG DRUG ADMINISTERED [None]
